FAERS Safety Report 22735371 (Version 2)
Quarter: 2025Q2

REPORT INFORMATION
  Report Type: Report from Study
  Country: CA (occurrence: CA)
  Receive Date: 20230721
  Receipt Date: 20250618
  Transmission Date: 20250717
  Serious: Yes (Death, Life-Threatening, Hospitalization, Other)
  Sender: JAZZ
  Company Number: CA-JAZZ PHARMACEUTICALS-2023-CA-015455

PATIENT
  Age: 77 Year
  Sex: Male
  Weight: 72 kg

DRUGS (3)
  1. LURBINECTEDIN [Suspect]
     Active Substance: LURBINECTEDIN
     Indication: Small cell lung cancer
     Route: 042
     Dates: start: 20230411, end: 20230411
  2. ONDANSETRON [Concomitant]
     Active Substance: ONDANSETRON
     Dates: start: 20230411, end: 20230413
  3. DEXAMETHASONE [Concomitant]
     Active Substance: DEXAMETHASONE
     Dates: start: 20230408, end: 20230419

REACTIONS (2)
  - Febrile neutropenia [Fatal]
  - Pneumonia [Fatal]

NARRATIVE: CASE EVENT DATE: 20230419
